FAERS Safety Report 9826141 (Version 3)
Quarter: 2014Q2

REPORT INFORMATION
  Report Type: Spontaneous
  Country: US (occurrence: US)
  Receive Date: 20140117
  Receipt Date: 20140416
  Transmission Date: 20141212
  Serious: No
  Sender: FDA-Public Use
  Company Number: US-PFIZER INC-2014012514

PATIENT
  Age: 49 Year
  Sex: Male

DRUGS (5)
  1. NEURONTIN [Suspect]
     Dosage: UNK
  2. TRAMADOL HYDROCHLORIDE [Suspect]
     Dosage: UNK
  3. CIPRO [Suspect]
     Dosage: UNK
  4. NAPROSYN [Suspect]
     Dosage: UNK
  5. PENICILLIN G SODIUM [Suspect]
     Dosage: UNK

REACTIONS (1)
  - Drug hypersensitivity [Unknown]
